FAERS Safety Report 25953440 (Version 1)
Quarter: 2025Q4

REPORT INFORMATION
  Report Type: Spontaneous
  Country: US (occurrence: None)
  Receive Date: 20251023
  Receipt Date: 20251023
  Transmission Date: 20260118
  Serious: Yes (Death)
  Sender: FDA-CTU
  Company Number: None

PATIENT
  Age: 81 Year
  Sex: Male

DRUGS (12)
  1. REPATHA [Suspect]
     Active Substance: EVOLOCUMAB
     Indication: Atrial fibrillation
     Dates: start: 20240903
  2. REPATHA [Suspect]
     Active Substance: EVOLOCUMAB
     Indication: Atrioventricular block
  3. TORSEMIDE [Concomitant]
     Active Substance: TORSEMIDE
  4. MIRABEGRON [Concomitant]
     Active Substance: MIRABEGRON
  5. XARELTO [Concomitant]
     Active Substance: RIVAROXABAN
  6. LOSARTAN [Concomitant]
     Active Substance: LOSARTAN
  7. CARVEDILOL [Concomitant]
     Active Substance: CARVEDILOL
  8. DULOXETINE [Concomitant]
     Active Substance: DULOXETINE
  9. Spironlactone [Concomitant]
  10. MODAFINIL [Concomitant]
     Active Substance: MODAFINIL
  11. OMEPRAZOLE [Concomitant]
     Active Substance: OMEPRAZOLE
  12. Zetia and iron and Vitamin B complex and Coenzyme Q10 [Concomitant]

REACTIONS (1)
  - Death [None]

NARRATIVE: CASE EVENT DATE: 20251019
